FAERS Safety Report 17689976 (Version 12)
Quarter: 2021Q2

REPORT INFORMATION
  Report Type: Report from Study
  Country: TR (occurrence: TR)
  Receive Date: 20200421
  Receipt Date: 20210419
  Transmission Date: 20210716
  Serious: Yes (Death, Hospitalization)
  Sender: FDA-Public Use
  Company Number: TR-EISAI MEDICAL RESEARCH-EC-2020-072002

PATIENT
  Age: 61 Year
  Sex: Male
  Weight: 47 kg

DRUGS (21)
  1. PEMBROLIZUMAB. [Suspect]
     Active Substance: PEMBROLIZUMAB
     Route: 041
     Dates: start: 20200114
  2. KORDEXA [Concomitant]
     Active Substance: DEXAMETHASONE
     Dates: start: 20191224, end: 20191226
  3. CARBOPLATIN. [Suspect]
     Active Substance: CARBOPLATIN
     Indication: NON-SMALL CELL LUNG CANCER METASTATIC
     Dosage: AREA UNDER CURVE (AUC) 5MG/ML/MIN
     Route: 042
     Dates: start: 20191101, end: 20191122
  4. CARBOPLATIN. [Suspect]
     Active Substance: CARBOPLATIN
     Dosage: REDUCED DOSE (DOSE UNKNOWN)
     Route: 042
     Dates: start: 20200114, end: 20200114
  5. PEMETREXED. [Suspect]
     Active Substance: PEMETREXED
     Indication: NON-SMALL CELL LUNG CANCER METASTATIC
     Route: 042
     Dates: start: 20191101, end: 20191122
  6. PEMETREXED. [Suspect]
     Active Substance: PEMETREXED
     Dosage: REDUCE DOSE (DOSE UNKNOWN)
     Route: 042
     Dates: start: 20200114
  7. FOLBIOL [Concomitant]
     Active Substance: FOLIC ACID
     Dates: start: 20191031
  8. DEKORT [Concomitant]
     Active Substance: DEXAMETHASONE
     Dates: start: 20191225, end: 20191225
  9. ULCURAN [Concomitant]
     Active Substance: RANITIDINE HYDROCHLORIDE
     Dates: start: 20191225, end: 20191225
  10. LANSOR [Concomitant]
     Active Substance: LANSOPRAZOLE
     Dates: start: 20191101, end: 20200316
  11. KYTRIL [Concomitant]
     Active Substance: GRANISETRON HYDROCHLORIDE
     Dates: start: 20191225, end: 20191225
  12. LENVATINIB [Suspect]
     Active Substance: LENVATINIB
     Indication: SMALL CELL LUNG CANCER METASTATIC
     Route: 048
     Dates: start: 20191101
  13. CARBOPLATIN. [Suspect]
     Active Substance: CARBOPLATIN
     Dosage: AREA UNDER CURVE (AUC) 5MG/ML/MIN
     Route: 042
     Dates: start: 20191225, end: 20191225
  14. CIPRO [Concomitant]
     Active Substance: CIPROFLOXACIN HYDROCHLORIDE
     Dates: start: 20191210, end: 20191215
  15. PEMBROLIZUMAB. [Suspect]
     Active Substance: PEMBROLIZUMAB
     Indication: NON-SMALL CELL LUNG CANCER METASTATIC
     Route: 041
     Dates: start: 20191101, end: 20191122
  16. PEMETREXED. [Suspect]
     Active Substance: PEMETREXED
     Route: 042
     Dates: start: 20191225, end: 20191225
  17. PEMBROLIZUMAB. [Suspect]
     Active Substance: PEMBROLIZUMAB
     Route: 041
     Dates: start: 20191225, end: 20191225
  18. KEPPRA [Concomitant]
     Active Substance: LEVETIRACETAM
     Dates: start: 20191211
  19. OMNIPAQUE [Concomitant]
     Active Substance: IOHEXOL
     Dates: start: 20191218, end: 20191218
  20. AUGMENTIN [Concomitant]
     Active Substance: AMOXICILLIN\CLAVULANATE POTASSIUM
     Dates: start: 20191210, end: 20191215
  21. GRANITRON [Concomitant]
     Dates: start: 20191224, end: 20191226

REACTIONS (1)
  - Weight decreased [Not Recovered/Not Resolved]

NARRATIVE: CASE EVENT DATE: 20191225
